FAERS Safety Report 7232340-5 (Version None)
Quarter: 2011Q1

REPORT INFORMATION
  Report Type: 
  Country: None (occurrence: None)
  Receive Date: 20110106
  Receipt Date: 20101208
  Transmission Date: 20110831
  Serious: Yes (Life-Threatening)
  Sender: FDA-Public Use
  Company Number: 1000018040

PATIENT
  Age: 55 Year
  Sex: Female

DRUGS (8)
  1. ESCITALOPRAM [Suspect]
     Indication: DEPRESSION
     Dosage: 2.5 MG (2.5 MG, 1 IN 1 D), ORAL;3.75 MG (3.75 MG, 1 IN 1 D),ORAL; 5 MG (5 MG, 1 IN 1 D),ORAL
     Route: 048
     Dates: start: 20101207, end: 20101213
  2. ESCITALOPRAM [Suspect]
     Indication: ANXIETY
     Dosage: 2.5 MG (2.5 MG, 1 IN 1 D), ORAL;3.75 MG (3.75 MG, 1 IN 1 D),ORAL; 5 MG (5 MG, 1 IN 1 D),ORAL
     Route: 048
     Dates: start: 20101207, end: 20101213
  3. ESCITALOPRAM [Suspect]
     Indication: DEPRESSION
     Dosage: 2.5 MG (2.5 MG, 1 IN 1 D), ORAL;3.75 MG (3.75 MG, 1 IN 1 D),ORAL; 5 MG (5 MG, 1 IN 1 D),ORAL
     Route: 048
     Dates: start: 20101214
  4. ESCITALOPRAM [Suspect]
     Indication: ANXIETY
     Dosage: 2.5 MG (2.5 MG, 1 IN 1 D), ORAL;3.75 MG (3.75 MG, 1 IN 1 D),ORAL; 5 MG (5 MG, 1 IN 1 D),ORAL
     Route: 048
     Dates: start: 20101214
  5. ESCITALOPRAM [Suspect]
     Indication: DEPRESSION
     Dosage: 2.5 MG (2.5 MG, 1 IN 1 D), ORAL;3.75 MG (3.75 MG, 1 IN 1 D),ORAL; 5 MG (5 MG, 1 IN 1 D),ORAL
     Route: 048
     Dates: start: 20101130, end: 20101206
  6. ESCITALOPRAM [Suspect]
     Indication: ANXIETY
     Dosage: 2.5 MG (2.5 MG, 1 IN 1 D), ORAL;3.75 MG (3.75 MG, 1 IN 1 D),ORAL; 5 MG (5 MG, 1 IN 1 D),ORAL
     Route: 048
     Dates: start: 20101130, end: 20101206
  7. PROPAVAN (PROPIOMAZINE MALEATE) (TABLETS) (PROPIOMAZINE MALEATE) [Concomitant]
  8. SOBRIL (OXAZEPAM) (OXAZEPAM) [Concomitant]

REACTIONS (6)
  - ANXIETY [None]
  - NAUSEA [None]
  - SUICIDAL IDEATION [None]
  - INSOMNIA [None]
  - RESTLESSNESS [None]
  - FEELING ABNORMAL [None]
